FAERS Safety Report 9532803 (Version 1)
Quarter: 2013Q3

REPORT INFORMATION
  Report Type: Spontaneous
  Country: DK (occurrence: GB)
  Receive Date: 20130918
  Receipt Date: 20130918
  Transmission Date: 20140515
  Serious: Yes (Other)
  Sender: FDA-Public Use
  Company Number: GB-FRI-1000048862

PATIENT
  Sex: Female

DRUGS (2)
  1. MEMANTINE [Suspect]
     Indication: DEMENTIA ALZHEIMER^S TYPE
     Dosage: TITRATED UP TO 20 MG DAILY
     Route: 048
     Dates: end: 201308
  2. MEMANTINE [Suspect]
     Dosage: 15 MG
     Route: 048
     Dates: start: 201308

REACTIONS (1)
  - Epilepsy [Not Recovered/Not Resolved]
